FAERS Safety Report 21481124 (Version 1)
Quarter: 2022Q4

REPORT INFORMATION
  Report Type: Other
  Country: US (occurrence: None)
  Receive Date: 20221019
  Receipt Date: 20221019
  Transmission Date: 20230112
  Serious: No
  Sender: FDA-Public Use
  Company Number: US-ROCHE-3147025

PATIENT
  Age: 32 Year
  Sex: Female

DRUGS (1)
  1. COBIMETINIB [Suspect]
     Active Substance: COBIMETINIB
     Indication: Erdheim-Chester disease
     Route: 065

REACTIONS (6)
  - Fatigue [Unknown]
  - Rash [Unknown]
  - Nausea [Unknown]
  - Diarrhoea [Unknown]
  - Pyrexia [Unknown]
  - Vomiting [Unknown]
